FAERS Safety Report 13824860 (Version 1)
Quarter: 2017Q3

REPORT INFORMATION
  Report Type: Spontaneous
  Country: US (occurrence: US)
  Receive Date: 20170720
  Receipt Date: 20170720
  Transmission Date: 20171127
  Serious: No
  Sender: FDA-Public Use
  Company Number: None

PATIENT
  Age: 48 Year
  Sex: Female
  Weight: 67.5 kg

DRUGS (4)
  1. DEGREE MOTION SENSE DRYSPRAY (USE-ANTIPERPIRANT) [Suspect]
     Active Substance: ALUMINUM CHLOROHYDRATE
     Indication: HYPERHIDROSIS
     Route: 061
     Dates: start: 20170715, end: 20170715
  2. VITAMIN B12 [Concomitant]
     Active Substance: CYANOCOBALAMIN
  3. TEMAZEPAM. [Concomitant]
     Active Substance: TEMAZEPAM
  4. VENLAFLAXINE [Concomitant]
     Active Substance: VENLAFAXINE HYDROCHLORIDE

REACTIONS (2)
  - Drug effect decreased [None]
  - Application site rash [None]

NARRATIVE: CASE EVENT DATE: 20170715
